FAERS Safety Report 20954020 (Version 2)
Quarter: 2022Q3

REPORT INFORMATION
  Report Type: Spontaneous
  Country: US (occurrence: None)
  Receive Date: 20220614
  Receipt Date: 20220712
  Transmission Date: 20221027
  Serious: Yes (Hospitalization)
  Sender: FDA-Public Use
  Company Number: US-ROCHE-3112223

PATIENT
  Sex: Female

DRUGS (2)
  1. ERIVEDGE [Suspect]
     Active Substance: VISMODEGIB
     Indication: Neoplasm skin
     Route: 048
     Dates: start: 20220214
  2. WARFARIN [Suspect]
     Active Substance: WARFARIN
     Indication: Product used for unknown indication
     Route: 065

REACTIONS (5)
  - Diarrhoea [Unknown]
  - Dehydration [Unknown]
  - Abdominal pain upper [Unknown]
  - Off label use [Unknown]
  - Haemorrhage [Not Recovered/Not Resolved]
